FAERS Safety Report 22013008 (Version 7)
Quarter: 2024Q1

REPORT INFORMATION
  Report Type: Spontaneous
  Country: GB (occurrence: GB)
  Receive Date: 20230220
  Receipt Date: 20240118
  Transmission Date: 20240410
  Serious: Yes (Other)
  Sender: FDA-Public Use
  Company Number: GB-MYLANLABS-2022M1089292

PATIENT
  Age: 64 Year
  Sex: Female

DRUGS (1)
  1. CLOZARIL [Suspect]
     Active Substance: CLOZAPINE
     Indication: Schizophrenia
     Dosage: UNK
     Route: 048
     Dates: start: 20190415

REACTIONS (2)
  - Anaemia [Not Recovered/Not Resolved]
  - Differential white blood cell count abnormal [Unknown]

NARRATIVE: CASE EVENT DATE: 20220824
